FAERS Safety Report 13261125 (Version 2)
Quarter: 2017Q1

REPORT INFORMATION
  Report Type: Report from Study
  Country: CA (occurrence: CA)
  Receive Date: 20170222
  Receipt Date: 20170223
  Transmission Date: 20170428
  Serious: Yes (Other)
  Sender: FDA-Public Use
  Company Number: CA-HLSUS-2017-CA-000162

PATIENT
  Age: 50 Year
  Sex: Female

DRUGS (1)
  1. CLOZARIL [Suspect]
     Active Substance: CLOZAPINE
     Dosage: 12.5 MG
     Route: 048
     Dates: start: 20170207, end: 20170216

REACTIONS (10)
  - Blood triglycerides increased [Unknown]
  - C-reactive protein increased [Unknown]
  - Right ventricular hypertrophy [Unknown]
  - Red blood cell count increased [Recovered/Resolved]
  - Haematocrit increased [Recovered/Resolved]
  - Sinus tachycardia [Unknown]
  - Ischaemia [Unknown]
  - Myocardial infarction [Unknown]
  - Haemoglobin increased [Recovered/Resolved]
  - Diastolic dysfunction [Unknown]

NARRATIVE: CASE EVENT DATE: 2015
